FAERS Safety Report 20113677 (Version 10)
Quarter: 2022Q4

REPORT INFORMATION
  Report Type: Report from Study
  Country: CO (occurrence: CO)
  Receive Date: 20211125
  Receipt Date: 20221221
  Transmission Date: 20230112
  Serious: Yes (Hospitalization, Other)
  Sender: FDA-Public Use
  Company Number: CO-AMGEN-COLSL2021158968

PATIENT
  Age: 74 Year
  Sex: Female

DRUGS (7)
  1. VECTIBIX [Suspect]
     Active Substance: PANITUMUMAB
     Indication: Colorectal cancer metastatic
     Dosage: 500 MILLIGRAM, Q2WK
     Route: 042
     Dates: start: 20210203
  2. VECTIBIX [Suspect]
     Active Substance: PANITUMUMAB
     Dosage: 500 MILLIGRAM, Q2WK
     Route: 042
     Dates: start: 20211012
  3. VECTIBIX [Suspect]
     Active Substance: PANITUMUMAB
     Dosage: 500 MILLIGRAM, Q2WK
     Route: 042
     Dates: start: 20211116
  4. VECTIBIX [Suspect]
     Active Substance: PANITUMUMAB
     Dosage: 500 MILLIGRAM, Q2WK
     Route: 042
     Dates: start: 20220722
  5. VECTIBIX [Suspect]
     Active Substance: PANITUMUMAB
     Dosage: 500 MILLIGRAM, Q2WK
     Route: 042
     Dates: start: 20220922
  6. VECTIBIX [Suspect]
     Active Substance: PANITUMUMAB
     Dosage: 500 MILLIGRAM, Q3WK, 21 DAYS
     Route: 042
     Dates: start: 20221121
  7. POLYVINYL ALCOHOL [Concomitant]
     Active Substance: POLYVINYL ALCOHOL
     Dosage: APPLY 1 DROP IN EACH EYE EVERY 12 HOURS

REACTIONS (17)
  - Renal failure [Not Recovered/Not Resolved]
  - Urinary tract infection [Recovering/Resolving]
  - Dehydration [Not Recovered/Not Resolved]
  - Weight decreased [Not Recovered/Not Resolved]
  - Decreased immune responsiveness [Not Recovered/Not Resolved]
  - Tumour ablation [Recovered/Resolved]
  - Thrombocytopenia [Not Recovered/Not Resolved]
  - COVID-19 [Recovered/Resolved]
  - Wound [Not Recovered/Not Resolved]
  - Skin reaction [Not Recovered/Not Resolved]
  - Dermatitis [Not Recovered/Not Resolved]
  - Decreased appetite [Not Recovered/Not Resolved]
  - Dry skin [Not Recovered/Not Resolved]
  - Rash [Not Recovered/Not Resolved]
  - Ocular hyperaemia [Not Recovered/Not Resolved]
  - Gastritis [Not Recovered/Not Resolved]
  - Off label use [Unknown]

NARRATIVE: CASE EVENT DATE: 20210101
